FAERS Safety Report 6701866-2 (Version None)
Quarter: 2010Q2

REPORT INFORMATION
  Report Type: 
  Country: None (occurrence: None)
  Receive Date: 20100429
  Receipt Date: 20100420
  Transmission Date: 20101027
  Serious: Yes (Other)
  Sender: FDA-Public Use
  Company Number: IN-BRISTOL-MYERS SQUIBB COMPANY-15076607

PATIENT
  Age: 60 Year
  Sex: Male

DRUGS (1)
  1. MITOMYCIN-C [Suspect]
     Indication: TRABECULECTOMY
     Dosage: (3 MINTS SUBSCLERAL AND 1 MINT SUBCONJUNCTIVAL).
     Route: 057

REACTIONS (2)
  - KERATITIS HERPETIC [None]
  - UVEITIS [None]
